FAERS Safety Report 9897212 (Version 1)
Quarter: 2014Q1

REPORT INFORMATION
  Report Type: Other
  Country: US (occurrence: US)
  Receive Date: 20140214
  Receipt Date: 20140214
  Transmission Date: 20141002
  Serious: Yes (Hospitalization)
  Sender: FDA-Public Use
  Company Number: US-SHIRE-ALL1-2014-00890

PATIENT
  Age: 23 Year
  Sex: Female

DRUGS (2)
  1. ELAPRASE [Suspect]
     Indication: MUCOPOLYSACCHARIDOSIS
     Dosage: 24 MG, 1X/WEEK
     Route: 041
     Dates: start: 20120124
  2. ELAPRASE [Suspect]
     Dosage: 12 MG, 1X/WEEK
     Route: 041
     Dates: start: 20140203

REACTIONS (4)
  - Pneumonia [Unknown]
  - Haemoptysis [Unknown]
  - Polyp [Unknown]
  - Dyspnoea [Unknown]
